FAERS Safety Report 23491142 (Version 4)
Quarter: 2024Q2

REPORT INFORMATION
  Report Type: Spontaneous
  Country: FR (occurrence: FR)
  Receive Date: 20240207
  Receipt Date: 20240517
  Transmission Date: 20240715
  Serious: Yes (Other)
  Sender: FDA-Public Use
  Company Number: FR-VIIV HEALTHCARE LIMITED-FR2023EME167104

PATIENT
  Age: 56 Year
  Sex: Male
  Weight: 90 kg

DRUGS (12)
  1. LAMIVUDINE [Suspect]
     Active Substance: LAMIVUDINE
     Indication: HIV infection
     Dosage: 100 MILLIGRAM (100MG 1X)
     Route: 065
     Dates: start: 202305, end: 202310
  2. LAMIVUDINE [Suspect]
     Active Substance: LAMIVUDINE
     Dosage: 100 MILLIGRAM (100MG 1X)
     Route: 048
     Dates: start: 202305, end: 20231107
  3. LAMIVUDINE [Suspect]
     Active Substance: LAMIVUDINE
     Dosage: 100 MILLIGRAM (100MG 1X)
     Route: 048
     Dates: start: 20230620, end: 20231107
  4. DARUNAVIR [Suspect]
     Active Substance: DARUNAVIR
     Indication: HIV infection
     Dosage: UNK
     Route: 065
     Dates: start: 202305, end: 202310
  5. DARUNAVIR [Suspect]
     Active Substance: DARUNAVIR
     Dosage: 800 MILLIGRAM, ONCE A DAY
     Route: 048
     Dates: start: 202305, end: 20231107
  6. DARUNAVIR [Suspect]
     Active Substance: DARUNAVIR
     Dosage: 800 MILLIGRAM, ONCE A DAY
     Route: 048
     Dates: start: 20230620, end: 20231107
  7. RITONAVIR [Suspect]
     Active Substance: RITONAVIR
     Indication: HIV infection
     Dosage: 100 MILLIGRAM, ONCE A DAY (100 MG, QD)
     Route: 048
     Dates: start: 20230620, end: 202310
  8. RITONAVIR [Suspect]
     Active Substance: RITONAVIR
     Dosage: 100 MILLIGRAM, ONCE A DAY (100 MG, QD)
     Route: 048
     Dates: start: 20230620, end: 20231107
  9. TIVICAY [Suspect]
     Active Substance: DOLUTEGRAVIR SODIUM
     Indication: HIV infection
     Dosage: 1 DOSAGE FORM, ONCE A DAY (1 DF, QD)
     Route: 065
     Dates: start: 202305, end: 202310
  10. TIVICAY [Suspect]
     Active Substance: DOLUTEGRAVIR SODIUM
     Indication: Renal failure
     Dosage: 50 MILLIGRAM, ONCE A DAY (50 MG, QD)
     Route: 048
     Dates: start: 202305, end: 20231107
  11. TIVICAY [Suspect]
     Active Substance: DOLUTEGRAVIR SODIUM
     Dosage: 50 MILLIGRAM, ONCE A DAY (50 MG, QD)
     Route: 048
     Dates: start: 20230620, end: 20231107
  12. AMLODIPINE [Concomitant]
     Active Substance: AMLODIPINE BESYLATE
     Indication: Hypertension
     Dosage: 10 MILLIGRAM, ONCE A DAY (10 MG, QD)
     Route: 048
     Dates: end: 20230829

REACTIONS (5)
  - Weight increased [Recovering/Resolving]
  - Irritability [Recovering/Resolving]
  - Verbal abuse [Recovering/Resolving]
  - Chronic obstructive pulmonary disease [Unknown]
  - Product use in unapproved indication [Unknown]

NARRATIVE: CASE EVENT DATE: 20230620
